FAERS Safety Report 17370471 (Version 1)
Quarter: 2020Q1

REPORT INFORMATION
  Report Type: Spontaneous
  Country: US (occurrence: US)
  Receive Date: 20200121
  Receipt Date: 20200121
  Transmission Date: 20200409
  Serious: No
  Sender: FDA-Public Use
  Company Number: None

PATIENT
  Age: 32 Year
  Sex: Female

DRUGS (1)
  1. GILENYA [Suspect]
     Active Substance: FINGOLIMOD HYDROCHLORIDE
     Indication: MULTIPLE SCLEROSIS
     Route: 048
     Dates: start: 20171221

REACTIONS (4)
  - Pyrexia [None]
  - Nasopharyngitis [None]
  - Oropharyngeal pain [None]
  - Impaired work ability [None]

NARRATIVE: CASE EVENT DATE: 201912
